FAERS Safety Report 4494235-X (Version None)
Quarter: 2004Q4

REPORT INFORMATION
  Report Type: 
  Country: None (occurrence: None)
  Receive Date: 20041102
  Receipt Date: 20041018
  Transmission Date: 20050328
  Serious: Yes (Hospitalization)
  Sender: FDA-Public Use
  Company Number: F01200402107

PATIENT
  Age: 65 Year
  Sex: Female

DRUGS (13)
  1. (OXALIPLATIN) - SOLUTION - 130 MG/M2 [Suspect]
     Indication: COLORECTAL CANCER
     Dosage: 130 MG/M2 Q3W
     Route: 042
     Dates: start: 20040415, end: 20040415
  2. CAPECITABINE TABLET 850MG/M2 [Suspect]
     Dosage: 850 MG/M2 TWICE DAILY FROM D1 TO D15, Q3W
     Route: 048
     Dates: start: 20040415, end: 20040429
  3. AVASTIN [Suspect]
     Dosage: 7.5 MG/KG OVER 30-90 MINUTES IV INFUSION ON DAY 1, Q3W
     Route: 042
     Dates: start: 20040415, end: 20040415
  4. HYZAAR (HCTZ/LOSARTAN POTASSIUM/COZAAR PLUS/LORZAAR PLUS) [Concomitant]
  5. VIOXX [Concomitant]
  6. NEXIUM [Concomitant]
  7. ASPIRIN [Concomitant]
  8. LOVASTATIN [Concomitant]
  9. LEVOTHYROXINE SODIUM [Concomitant]
  10. NPH INSULIN [Concomitant]
  11. LOMOTIL [Concomitant]
  12. MS CONTIN [Concomitant]
  13. IMODIUM [Concomitant]

REACTIONS (3)
  - DIARRHOEA [None]
  - ENTEROCUTANEOUS FISTULA [None]
  - INCISIONAL DRAINAGE [None]
